FAERS Safety Report 25325127 (Version 1)
Quarter: 2025Q2

REPORT INFORMATION
  Report Type: Spontaneous
  Country: US (occurrence: US)
  Receive Date: 20250516
  Receipt Date: 20250516
  Transmission Date: 20250717
  Serious: Yes (Death)
  Sender: CB FLEET
  Company Number: US-PRESTIGE-202505-US-001319

PATIENT
  Age: 72 Year
  Sex: Female

DRUGS (5)
  1. GOODYS EXTRA STRENGTH [Suspect]
     Active Substance: ACETAMINOPHEN\ASPIRIN\CAFFEINE
     Indication: Product used for unknown indication
     Route: 048
  2. NORVASC [Concomitant]
     Active Substance: AMLODIPINE BESYLATE
     Indication: Hypertension
  3. ROSUVASTATIN [Concomitant]
     Active Substance: ROSUVASTATIN
     Indication: Blood cholesterol increased
  4. OXYCODONE [Concomitant]
     Active Substance: OXYCODONE
     Indication: Back pain
  5. METFORMIN [Concomitant]
     Active Substance: METFORMIN HYDROCHLORIDE
     Indication: Diabetes mellitus

REACTIONS (3)
  - Septic shock [Fatal]
  - Intestinal perforation [Fatal]
  - Gastrointestinal haemorrhage [Fatal]
